FAERS Safety Report 24860917 (Version 4)
Quarter: 2025Q3

REPORT INFORMATION
  Report Type: Report from Study
  Country: CR (occurrence: CR)
  Receive Date: 20250120
  Receipt Date: 20250802
  Transmission Date: 20251020
  Serious: Yes (Hospitalization, Other)
  Sender: ALEXION PHARMACEUTICALS
  Company Number: CR-AstraZeneca-CH-00784770AM

PATIENT
  Age: 63 Year
  Sex: Female

DRUGS (3)
  1. TAGRISSO [Suspect]
     Active Substance: OSIMERTINIB
     Indication: Lung neoplasm malignant
     Dosage: 80 MILLIGRAM, QD
  2. DAPAGLIFLOZIN [Suspect]
     Active Substance: DAPAGLIFLOZIN
     Route: 065
  3. ALBUTEROL [Concomitant]
     Active Substance: ALBUTEROL
     Route: 065

REACTIONS (26)
  - Diarrhoea [Unknown]
  - Vomiting [Unknown]
  - Tachycardia [Unknown]
  - Pain in extremity [Unknown]
  - Abdominal pain upper [Unknown]
  - Metastases to lung [Unknown]
  - Breast cancer [Unknown]
  - Pneumonia [Unknown]
  - Renal disorder [Unknown]
  - Malaise [Unknown]
  - Hypoacusis [Unknown]
  - Vision blurred [Unknown]
  - Anosmia [Unknown]
  - Memory impairment [Unknown]
  - Dyspnoea [Unknown]
  - Fatigue [Unknown]
  - Urticaria [Unknown]
  - Pulmonary pain [Unknown]
  - Stress [Unknown]
  - Productive cough [Unknown]
  - Illness [Unknown]
  - Haemorrhage [Unknown]
  - Fall [Not Recovered/Not Resolved]
  - Dizziness [Not Recovered/Not Resolved]
  - Skin burning sensation [Not Recovered/Not Resolved]
  - Pruritus [Not Recovered/Not Resolved]

NARRATIVE: CASE EVENT DATE: 20240301
